FAERS Safety Report 15382089 (Version 3)
Quarter: 2019Q1

REPORT INFORMATION
  Report Type: Report from Study
  Country: US (occurrence: US)
  Receive Date: 20180913
  Receipt Date: 20190222
  Transmission Date: 20190417
  Serious: Yes (Hospitalization)
  Sender: FDA-Public Use
  Company Number: US-ASTELLAS-2018US037494

PATIENT
  Sex: Male

DRUGS (1)
  1. ENZALUTAMIDE [Suspect]
     Active Substance: ENZALUTAMIDE
     Indication: PROSTATE CANCER
     Route: 048
     Dates: start: 201504

REACTIONS (6)
  - Ulcer haemorrhage [Recovered/Resolved]
  - Prostatic specific antigen increased [Not Recovered/Not Resolved]
  - Haemorrhage [Recovered/Resolved with Sequelae]
  - Anaemia [Recovered/Resolved with Sequelae]
  - Stenosis [Unknown]
  - Radiation injury [Unknown]
